FAERS Safety Report 7593045-4 (Version None)
Quarter: 2011Q3

REPORT INFORMATION
  Report Type: 
  Country: None (occurrence: None)
  Receive Date: 20110706
  Receipt Date: 20110627
  Transmission Date: 20111222
  Serious: Yes (Hospitalization)
  Sender: FDA-Public Use
  Company Number: FI-ROCHE-785234

PATIENT
  Sex: Female
  Weight: 50 kg

DRUGS (3)
  1. CELLCEPT [Suspect]
     Route: 065
  2. VALCYTE [Suspect]
     Route: 048
     Dates: start: 20110401
  3. VALCYTE [Suspect]
     Route: 048
     Dates: start: 20110523

REACTIONS (2)
  - CYTOMEGALOVIRUS INFECTION [None]
  - LUNG TRANSPLANT REJECTION [None]
